FAERS Safety Report 14726334 (Version 1)
Quarter: 2018Q2

REPORT INFORMATION
  Report Type: Spontaneous
  Country: FR (occurrence: FR)
  Receive Date: 20180406
  Receipt Date: 20180406
  Transmission Date: 20180711
  Serious: Yes (Other)
  Sender: FDA-Public Use
  Company Number: FR-MERCK KGAA-2045242

PATIENT
  Age: 46 Year
  Sex: Female

DRUGS (1)
  1. NOVOTHYROX [Suspect]
     Active Substance: LEVOTHYROXINE SODIUM
     Indication: HYPOTHYROIDISM

REACTIONS (20)
  - Apathy [None]
  - Hyperhidrosis [None]
  - Amnesia [None]
  - Insomnia [None]
  - Flushing [None]
  - Hyperthyroidism [None]
  - Abdominal pain [Recovering/Resolving]
  - Gastrooesophageal reflux disease [None]
  - Headache [None]
  - Myalgia [None]
  - Bone pain [None]
  - Anger [None]
  - Social problem [None]
  - Gastrointestinal motility disorder [Recovering/Resolving]
  - Depression [None]
  - Fatigue [None]
  - Flatulence [Recovering/Resolving]
  - Hypothyroidism [None]
  - Dizziness [None]
  - Weight increased [None]

NARRATIVE: CASE EVENT DATE: 201706
